FAERS Safety Report 14941556 (Version 1)
Quarter: 2018Q2

REPORT INFORMATION
  Report Type: Spontaneous
  Country: US (occurrence: US)
  Receive Date: 20180526
  Receipt Date: 20180526
  Transmission Date: 20180711
  Serious: No
  Sender: FDA-Public Use
  Company Number: US-TEVA-2018-US-897340

PATIENT
  Sex: Female

DRUGS (1)
  1. SUMATRIPTAN. [Suspect]
     Active Substance: SUMATRIPTAN
     Dosage: SUMATRIPTAN 6MG/0.5ML AUTOINJECTOR
     Route: 065

REACTIONS (2)
  - Needle issue [Unknown]
  - Injury associated with device [Unknown]
